FAERS Safety Report 8373477-7 (Version None)
Quarter: 2012Q2

REPORT INFORMATION
  Report Type: 
  Country: None (occurrence: None)
  Receive Date: 20120521
  Receipt Date: 20120515
  Transmission Date: 20120825
  Serious: Yes (Death)
  Sender: FDA-Public Use
  Company Number: US-US-EMD SERONO, INC.-7021856

PATIENT
  Sex: Female

DRUGS (1)
  1. REBIF [Suspect]
     Indication: MULTIPLE SCLEROSIS
     Route: 058
     Dates: start: 20030812, end: 20050401

REACTIONS (3)
  - SPEECH DISORDER [None]
  - DYSPHAGIA [None]
  - MULTIPLE SCLEROSIS [None]
